FAERS Safety Report 10096741 (Version 1)
Quarter: 2014Q2

REPORT INFORMATION
  Report Type: Spontaneous
  Country: DK (occurrence: CA)
  Receive Date: 20140422
  Receipt Date: 20140422
  Transmission Date: 20141212
  Serious: Yes (Hospitalization)
  Sender: FDA-Public Use
  Company Number: CA-FRI-1000066733

PATIENT
  Age: 54 Year
  Sex: Female

DRUGS (5)
  1. ESCITALOPRAM [Suspect]
     Dosage: 20 MG
     Route: 048
  2. ZELDOX [Suspect]
     Route: 048
  3. ZELDOX [Suspect]
     Dosage: 160 MG
     Route: 048
  4. CLONAZEPAM [Concomitant]
  5. COGENTIN [Concomitant]

REACTIONS (2)
  - Extrapyramidal disorder [Not Recovered/Not Resolved]
  - Large intestine operation [Not Recovered/Not Resolved]
